FAERS Safety Report 9225663 (Version 1)
Quarter: 2013Q2

REPORT INFORMATION
  Report Type: Spontaneous
  Country: US (occurrence: US)
  Receive Date: 20130411
  Receipt Date: 20130411
  Transmission Date: 20140414
  Serious: Yes (Other)
  Sender: FDA-Public Use
  Company Number: US-ELI_LILLY_AND_COMPANY-US201304001685

PATIENT
  Age: 60 Year
  Sex: Female

DRUGS (1)
  1. EVISTA [Suspect]

REACTIONS (5)
  - Cervical vertebral fracture [Unknown]
  - Osteoporotic fracture [Unknown]
  - Hand fracture [Unknown]
  - Pain [Unknown]
  - Body height decreased [Unknown]
